FAERS Safety Report 7914419-5 (Version None)
Quarter: 2011Q4

REPORT INFORMATION
  Report Type: 
  Country: None (occurrence: None)
  Receive Date: 20111115
  Receipt Date: 20101210
  Transmission Date: 20120403
  Serious: Yes (Death, Hospitalization)
  Sender: FDA-Public Use
  Company Number: JP-BAYER-200912418BYL

PATIENT
  Age: 70 Year
  Sex: Male
  Weight: 60 kg

DRUGS (11)
  1. LOXONIN [Concomitant]
     Dosage: 120 MG, UNK
     Route: 048
     Dates: start: 20090602, end: 20090711
  2. NEXAVAR [Suspect]
     Indication: HEPATIC NEOPLASM MALIGNANT
     Dosage: 800 MG (DAILY DOSE), , ORAL
     Route: 048
     Dates: start: 20090526, end: 20090711
  3. NEXAVAR [Suspect]
     Dosage: 800 MG (DAILY DOSE), , ORAL
     Route: 048
     Dates: start: 20100302, end: 20100312
  4. OMEPRAZOLE [Concomitant]
     Indication: DYSPEPSIA
     Dosage: 20 MG, UNK
     Route: 048
     Dates: start: 20090602, end: 20090711
  5. MUCOSTA [Concomitant]
     Dosage: 200 MG, UNK
     Route: 048
     Dates: start: 20090602, end: 20090711
  6. CODEINE PHOSPHATE [Concomitant]
     Dosage: 20 MG, UNK (BEFORE NEXAVAR ADMINISTRATION)
     Route: 048
     Dates: start: 20090101, end: 20090831
  7. PURSENNID [Concomitant]
     Dosage: 12 MG, UNK
     Route: 048
     Dates: start: 20090602, end: 20090711
  8. OXYCONTIN [Concomitant]
     Dosage: 10 MG, UNK (BEFORE NEXAVAR ADMINISTRATION)
     Route: 048
     Dates: start: 20090101, end: 20090711
  9. DEXTROMETHORPHAN HYDROBROMIDE [Concomitant]
     Dosage: 15 MG, QID (BEFORE NEXAVAR ADMINISTRATION)
     Route: 048
     Dates: start: 20090101, end: 20090711
  10. FENTANYL-100 [Concomitant]
     Dosage: EVERY THREE DAYS
     Route: 062
     Dates: start: 20090718
  11. OMEPRAZOLE [Concomitant]

REACTIONS (7)
  - DELIRIUM [None]
  - ECZEMA [None]
  - NAUSEA [None]
  - PALMAR-PLANTAR ERYTHRODYSAESTHESIA SYNDROME [None]
  - HEPATIC NEOPLASM MALIGNANT [None]
  - DIARRHOEA [None]
  - HYPERTENSION [None]
